FAERS Safety Report 11873325 (Version 2)
Quarter: 2016Q1

REPORT INFORMATION
  Report Type: Spontaneous
  Country: VN (occurrence: VN)
  Receive Date: 20151228
  Receipt Date: 20160104
  Transmission Date: 20160526
  Serious: Yes (Death, Life-Threatening, Hospitalization)
  Sender: FDA-Public Use
  Company Number: VN-PFIZER INC-2015468849

PATIENT
  Age: 77 Year
  Sex: Male
  Weight: 70 kg

DRUGS (1)
  1. SOLU-MEDROL [Suspect]
     Active Substance: METHYLPREDNISOLONE SODIUM SUCCINATE
     Indication: GOUT
     Dosage: 40 MG, UNK
     Route: 042
     Dates: start: 20151202, end: 20151202

REACTIONS (8)
  - Pulse absent [Fatal]
  - Cyanosis [Fatal]
  - Throat irritation [Fatal]
  - Peripheral coldness [Fatal]
  - Blood pressure immeasurable [Fatal]
  - Hypersensitivity [Fatal]
  - Dyspnoea [Fatal]
  - Coma [Fatal]

NARRATIVE: CASE EVENT DATE: 20151202
